FAERS Safety Report 5684543-9 (Version None)
Quarter: 2008Q1

REPORT INFORMATION
  Report Type: 
  Country: None (occurrence: None)
  Receive Date: 20080328
  Receipt Date: 20070312
  Transmission Date: 20080703
  Serious: Yes (Other)
  Sender: FDA-Public Use
  Company Number: US-BRISTOL-MYERS SQUIBB COMPANY-13660493

PATIENT
  Age: 62 Year
  Sex: Male

DRUGS (5)
  1. ERBITUX [Suspect]
     Indication: NEOPLASM MALIGNANT
     Route: 042
     Dates: start: 20060821, end: 20060821
  2. ANZEMET [Concomitant]
     Route: 042
     Dates: start: 20060821
  3. TYLENOL (CAPLET) [Concomitant]
     Route: 048
     Dates: start: 20060821
  4. BENADRYL [Concomitant]
     Route: 048
     Dates: start: 20060821
  5. SINGULAIR [Concomitant]
     Route: 048
     Dates: start: 20060821

REACTIONS (4)
  - HYPOTENSION [None]
  - INFUSION RELATED REACTION [None]
  - LOSS OF CONSCIOUSNESS [None]
  - PRURITUS [None]
